FAERS Safety Report 15717816 (Version 1)
Quarter: 2018Q4

REPORT INFORMATION
  Report Type: Spontaneous
  Country: GB (occurrence: GB)
  Receive Date: 20181213
  Receipt Date: 20181213
  Transmission Date: 20190205
  Serious: Yes (Life-Threatening, Other)
  Sender: FDA-Public Use
  Company Number: IND-GB-009507513-1812GBR003551

PATIENT
  Age: 39 Year
  Sex: Female
  Weight: 79 kg

DRUGS (5)
  1. ROCURONIUM BROMIDE. [Suspect]
     Active Substance: ROCURONIUM BROMIDE
     Indication: GENERAL ANAESTHESIA
     Dosage: 50 MILLIGRAM
     Route: 042
     Dates: start: 20181020, end: 20181020
  2. CASSIA [Concomitant]
  3. MIDAZOLAM [Suspect]
     Active Substance: MIDAZOLAM HYDROCHLORIDE
     Indication: GENERAL ANAESTHESIA
     Dosage: 2
     Route: 042
     Dates: start: 20181020, end: 20181020
  4. ACETAMINOPHEN AND CODEINE [Concomitant]
     Active Substance: ACETAMINOPHEN\CODEINE PHOSPHATE
  5. LAXIDO [Concomitant]
     Active Substance: POLYETHYLENE GLYCOL 3350\POTASSIUM CHLORIDE\SODIUM BICARBONATE\SODIUM CHLORIDE

REACTIONS (2)
  - Circulatory collapse [Recovered/Resolved]
  - Livedo reticularis [Unknown]

NARRATIVE: CASE EVENT DATE: 20181022
